FAERS Safety Report 19984136 (Version 2)
Quarter: 2021Q4

REPORT INFORMATION
  Report Type: Spontaneous
  Country: US (occurrence: US)
  Receive Date: 20211022
  Receipt Date: 20211110
  Transmission Date: 20220303
  Serious: Yes (Hospitalization, Other)
  Sender: FDA-Public Use
  Company Number: US-MLMSERVICE-20211007-3154212-1

PATIENT
  Age: 92 Year
  Sex: Female

DRUGS (1)
  1. SODIUM CHLORIDE [Suspect]
     Active Substance: SODIUM CHLORIDE
     Indication: Constipation
     Route: 054

REACTIONS (4)
  - Hypotension [Recovered/Resolved]
  - Acute myocardial infarction [Recovered/Resolved]
  - Tachycardia [Recovered/Resolved]
  - Left ventricular hypertrophy [Recovered/Resolved]
